FAERS Safety Report 12930494 (Version 1)
Quarter: 2016Q4

REPORT INFORMATION
  Report Type: Spontaneous
  Country: US (occurrence: US)
  Receive Date: 20161111
  Receipt Date: 20161111
  Transmission Date: 20170207
  Serious: No
  Sender: FDA-Public Use
  Company Number: None

PATIENT
  Age: 74 Year
  Sex: Female

DRUGS (20)
  1. DOXYCYC MONO [Concomitant]
     Active Substance: DOXYCYCLINE
  2. MULTI VITAMIN [Concomitant]
     Active Substance: VITAMINS
  3. ZYRTEC [Concomitant]
     Active Substance: CETIRIZINE HYDROCHLORIDE
  4. PLAVIX [Concomitant]
     Active Substance: CLOPIDOGREL BISULFATE
  5. LEVOFLOXACIN 750 MG [Suspect]
     Active Substance: LEVOFLOXACIN
     Indication: DIZZINESS
     Route: 048
     Dates: start: 20160919
  6. AMLODIPINE [Concomitant]
     Active Substance: AMLODIPINE BESYLATE
  7. ATROVENT [Concomitant]
     Active Substance: IPRATROPIUM BROMIDE
  8. OMEGA 3 [Concomitant]
     Active Substance: OMEGA-3 FATTY ACIDS
  9. TUDORZA PRESSAIR [Concomitant]
     Active Substance: ACLIDINIUM BROMIDE
  10. LEVOFLOXACIN 750 MG [Suspect]
     Active Substance: LEVOFLOXACIN
     Indication: COUGH
     Route: 048
     Dates: start: 20160919
  11. BIOTIN [Concomitant]
     Active Substance: BIOTIN
  12. LEVOFLOXACIN 750 MG [Suspect]
     Active Substance: LEVOFLOXACIN
     Indication: DYSPNOEA
     Route: 048
     Dates: start: 20160919
  13. ECOTRIN [Concomitant]
     Active Substance: ASPIRIN
  14. FIBER [Concomitant]
     Active Substance: PSYLLIUM HUSK
  15. LEVOFLOXACIN 750 MG [Suspect]
     Active Substance: LEVOFLOXACIN
     Indication: ASTHENIA
     Route: 048
     Dates: start: 20160919
  16. LOSARTAN. [Concomitant]
     Active Substance: LOSARTAN
  17. NEXIUM [Concomitant]
     Active Substance: ESOMEPRAZOLE MAGNESIUM
  18. COQ10 [Concomitant]
     Active Substance: UBIDECARENONE
  19. METOPROLOL. [Concomitant]
     Active Substance: METOPROLOL
  20. VITAMIN D3 [Concomitant]
     Active Substance: CHOLECALCIFEROL

REACTIONS (11)
  - Gastric disorder [None]
  - Flatulence [None]
  - Heart rate increased [None]
  - Throat irritation [None]
  - Dyspnoea [None]
  - Swelling [None]
  - Headache [None]
  - Burning sensation [None]
  - Abdominal discomfort [None]
  - Gastrointestinal disorder [None]
  - Gastrooesophageal reflux disease [None]

NARRATIVE: CASE EVENT DATE: 20160919
